FAERS Safety Report 6066425-6 (Version None)
Quarter: 2009Q1

REPORT INFORMATION
  Report Type: 
  Country: None (occurrence: None)
  Receive Date: 20090205
  Receipt Date: 20090127
  Transmission Date: 20090719
  Serious: Yes (Death)
  Sender: FDA-Public Use
  Company Number: ES-BAYER-200912054GPV

PATIENT
  Age: 74 Year
  Sex: Female

DRUGS (8)
  1. ADIRO 300 MG [Suspect]
     Indication: DRUG USE FOR UNKNOWN INDICATION
     Dosage: TOTAL DAILY DOSE: 300 MG  UNIT DOSE: 300 MG
     Route: 048
     Dates: start: 20070130, end: 20081027
  2. ZYLORIC 300 MG [Suspect]
     Indication: HYPERURICAEMIA
     Dosage: TOTAL DAILY DOSE: 300 MG  UNIT DOSE: 300 MG
     Route: 048
     Dates: start: 20080723, end: 20081027
  3. ESBERIVEN 100 MG [Suspect]
     Indication: VARICOSE VEIN
     Route: 048
     Dates: start: 20080229, end: 20081027
  4. AMLODIPINE [Suspect]
     Indication: DRUG USE FOR UNKNOWN INDICATION
     Route: 048
     Dates: start: 20070130
  5. SIMVASTATIN [Suspect]
     Indication: DYSLIPIDAEMIA
     Route: 048
     Dates: start: 20080515, end: 20081027
  6. METFORMIN HCL [Suspect]
     Indication: TYPE 2 DIABETES MELLITUS
     Route: 048
     Dates: start: 20080515
  7. TORSEMIDE [Suspect]
     Indication: CARDIAC FAILURE CONGESTIVE
     Route: 048
     Dates: start: 20080130
  8. COZAAR [Suspect]
     Indication: HYPERTENSION
     Route: 048
     Dates: start: 20070130

REACTIONS (3)
  - APLASTIC ANAEMIA [None]
  - HAEMATOMA [None]
  - PETECHIAE [None]
